FAERS Safety Report 6251286-2 (Version None)
Quarter: 2009Q2

REPORT INFORMATION
  Report Type: 
  Country: None (occurrence: None)
  Receive Date: 20090630
  Receipt Date: 20090617
  Transmission Date: 20091009
  Serious: Yes (Hospitalization, Other)
  Sender: FDA-Public Use
  Company Number: PHHY2009MX25621

PATIENT
  Sex: Female

DRUGS (4)
  1. DIOVAN HCT [Suspect]
     Indication: HYPERTENSION
     Dosage: 1 DF (160/25 MG)/ DAY
     Route: 048
     Dates: start: 19940601
  2. DILATREND [Concomitant]
  3. CATAPRESAN [Concomitant]
     Dosage: UNK
  4. NORVASC [Concomitant]

REACTIONS (10)
  - CARDIAC FAILURE [None]
  - CARDIAC PACEMAKER INSERTION [None]
  - CLAVICLE FRACTURE [None]
  - ELECTROENCEPHALOGRAM ABNORMAL [None]
  - FALL [None]
  - HEAD INJURY [None]
  - HYPERTENSION [None]
  - HYPOTENSION [None]
  - OEDEMA PERIPHERAL [None]
  - VERTIGO [None]
